FAERS Safety Report 11777110 (Version 1)
Quarter: 2015Q4

REPORT INFORMATION
  Report Type: Spontaneous
  Country: US (occurrence: US)
  Receive Date: 20151125
  Receipt Date: 20151125
  Transmission Date: 20160304
  Serious: No
  Sender: FDA-Public Use
  Company Number: US-TEVA-556193USA

PATIENT
  Sex: Male

DRUGS (3)
  1. CILOSTAZOL. [Suspect]
     Active Substance: CILOSTAZOL
     Indication: VASCULAR INSUFFICIENCY
     Dosage: 200 MILLIGRAM DAILY;
     Route: 048
     Dates: start: 20150220
  2. CILOSTAZOL. [Suspect]
     Active Substance: CILOSTAZOL
     Indication: PAIN PROPHYLAXIS
  3. PLAVIX [Suspect]
     Active Substance: CLOPIDOGREL BISULFATE
     Dates: start: 201502

REACTIONS (1)
  - Diarrhoea [Recovered/Resolved]
